FAERS Safety Report 9457542 (Version 1)
Quarter: 2013Q3

REPORT INFORMATION
  Report Type: Spontaneous
  Country: US (occurrence: None)
  Receive Date: 20130809
  Receipt Date: 20130809
  Transmission Date: 20140515
  Serious: Yes (Other)
  Sender: FDA-Public Use
  Company Number: 2013P1015512

PATIENT
  Age: 66 Year
  Sex: Male

DRUGS (1)
  1. RILUTEK [Suspect]

REACTIONS (2)
  - Dysphagia [None]
  - Disease progression [None]
